FAERS Safety Report 20721594 (Version 1)
Quarter: 2022Q2

REPORT INFORMATION
  Report Type: Report from Study
  Country: MX (occurrence: MX)
  Receive Date: 20220418
  Receipt Date: 20220418
  Transmission Date: 20220721
  Serious: Yes (Other)
  Sender: FDA-Public Use
  Company Number: MX-NOVARTISPH-NVSC2022MX089570

PATIENT
  Sex: Male
  Weight: 69 kg

DRUGS (2)
  1. EXELON [Suspect]
     Active Substance: RIVASTIGMINE TARTRATE
     Indication: Aggression
     Dosage: 1 DOSAGE FORM, QD (4.6/5MG, APPROXIMATELY 1 YEAR AGO, TRANSDEMIC DIRECTLY ON SKIN)
     Route: 062
  2. EXELON [Suspect]
     Active Substance: RIVASTIGMINE TARTRATE
     Indication: Anxiety

REACTIONS (5)
  - Dementia Alzheimer^s type [Unknown]
  - Speech disorder [Not Recovered/Not Resolved]
  - Head injury [Unknown]
  - Fall [Unknown]
  - Product use in unapproved indication [Not Recovered/Not Resolved]
